FAERS Safety Report 23141140 (Version 4)
Quarter: 2024Q2

REPORT INFORMATION
  Report Type: Spontaneous
  Country: JP (occurrence: JP)
  Receive Date: 20231103
  Receipt Date: 20240531
  Transmission Date: 20240716
  Serious: Yes (Hospitalization)
  Sender: FDA-Public Use
  Company Number: JP-LEO Pharma-364466

PATIENT
  Age: 65 Year
  Sex: Male

DRUGS (2)
  1. TACLONEX [Suspect]
     Active Substance: BETAMETHASONE DIPROPIONATE\CALCIPOTRIENE\CALCIPOTRIENE HYDRATE
     Indication: Psoriasis
     Route: 003
     Dates: start: 2016
  2. BETAMETHASONE DIPROPIONATE [Suspect]
     Active Substance: BETAMETHASONE DIPROPIONATE
     Indication: Psoriasis
     Route: 003
     Dates: start: 202212

REACTIONS (2)
  - Glycosylated haemoglobin increased [Recovering/Resolving]
  - Adrenocortical insufficiency acute [Recovering/Resolving]
